FAERS Safety Report 6991452-1 (Version None)
Quarter: 2010Q3

REPORT INFORMATION
  Report Type: 
  Country: None (occurrence: None)
  Receive Date: 20100916
  Receipt Date: 20090915
  Transmission Date: 20110219
  Serious: No
  Sender: FDA-Public Use
  Company Number: US-WYE-H11028009

PATIENT
  Age: 26 Year
  Sex: Male
  Weight: 68.1 kg

DRUGS (1)
  1. ADVIL PM [Suspect]
     Indication: INSOMNIA
     Dosage: 2 CAPLETS ONE TIME
     Route: 048
     Dates: start: 20090914, end: 20090914

REACTIONS (5)
  - ABNORMAL BEHAVIOUR [None]
  - ABNORMAL DREAMS [None]
  - DELUSION [None]
  - HALLUCINATION [None]
  - SPEECH DISORDER [None]
